FAERS Safety Report 13467036 (Version 5)
Quarter: 2019Q1

REPORT INFORMATION
  Report Type: Spontaneous
  Country: US (occurrence: US)
  Receive Date: 20170421
  Receipt Date: 20190208
  Transmission Date: 20190417
  Serious: Yes (Other)
  Sender: FDA-Public Use
  Company Number: US-BAUSCH-BL-2017-010308

PATIENT
  Age: 64 Year
  Sex: Female
  Weight: 53.12 kg

DRUGS (5)
  1. XIFAXAN [Suspect]
     Active Substance: RIFAXIMIN
     Indication: GASTROINTESTINAL BACTERIAL OVERGROWTH
     Route: 048
     Dates: start: 2009, end: 2017
  2. PREDNISONE. [Concomitant]
     Active Substance: PREDNISONE
     Indication: PRODUCT USED FOR UNKNOWN INDICATION
     Route: 048
  3. XIFAXAN [Suspect]
     Active Substance: RIFAXIMIN
     Indication: PRODUCT USE IN UNAPPROVED INDICATION
     Route: 048
     Dates: start: 20170313, end: 20170419
  4. TACROLIMUS. [Concomitant]
     Active Substance: TACROLIMUS
     Indication: PRODUCT USED FOR UNKNOWN INDICATION
     Route: 048
  5. XIFAXAN [Suspect]
     Active Substance: RIFAXIMIN
     Route: 048
     Dates: start: 20170501, end: 2018

REACTIONS (8)
  - Diarrhoea [Not Recovered/Not Resolved]
  - Product use in unapproved indication [Recovered/Resolved]
  - Malaise [Unknown]
  - Weight decreased [Not Recovered/Not Resolved]
  - Therapy cessation [Not Recovered/Not Resolved]
  - Product availability issue [Not Recovered/Not Resolved]
  - Disease recurrence [Unknown]
  - Gastrointestinal bacterial overgrowth [Unknown]

NARRATIVE: CASE EVENT DATE: 2009
